FAERS Safety Report 23114984 (Version 5)
Quarter: 2024Q2

REPORT INFORMATION
  Report Type: Report from Study
  Country: US (occurrence: US)
  Receive Date: 20231027
  Receipt Date: 20240607
  Transmission Date: 20240716
  Serious: Yes (Hospitalization, Other)
  Sender: FDA-Public Use
  Company Number: US-AGIOS-2310US03509

PATIENT
  Sex: Male

DRUGS (1)
  1. MITAPIVAT [Suspect]
     Active Substance: MITAPIVAT
     Indication: Pyruvate kinase deficiency anaemia
     Dosage: 50 MILLIGRAM, BID
     Route: 048
     Dates: start: 20220415

REACTIONS (6)
  - Haemolysis [Recovering/Resolving]
  - Ankle fracture [Unknown]
  - Infection [Recovering/Resolving]
  - Nasopharyngitis [Recovering/Resolving]
  - Osteolysis [Unknown]
  - Joint instability [Unknown]
